FAERS Safety Report 17918672 (Version 1)
Quarter: 2020Q2

REPORT INFORMATION
  Report Type: Spontaneous
  Country: DE (occurrence: DE)
  Receive Date: 20200619
  Receipt Date: 20200619
  Transmission Date: 20200714
  Serious: Yes (Hospitalization)
  Sender: FDA-Public Use
  Company Number: DE-PFIZER INC-2020235870

PATIENT
  Age: 77 Year
  Sex: Female
  Weight: 50 kg

DRUGS (13)
  1. BISOPROLOL [Concomitant]
     Active Substance: BISOPROLOL
     Dosage: 2.5 MG, CYCLIC (1-0-0-0)
  2. METOCLOPRAMID [METOCLOPRAMIDE] [Concomitant]
     Active Substance: METOCLOPRAMIDE
     Dosage: 10 MG, CYCLIC (1-0-1-0)
  3. TRAMADOL. [Suspect]
     Active Substance: TRAMADOL
     Dosage: 100 MG, CYCLIC (1-1-1-1)
  4. ZOPICLON [Suspect]
     Active Substance: ZOPICLONE
     Dosage: 7.5 MG, CYCLIC (0-0-0-1.5 )
  5. METAMIZOL [Concomitant]
     Active Substance: METAMIZOLE SODIUM
     Dosage: 500 MG, CYCLIC (1-1-1-0)
  6. PANTOPRAZOL [PANTOPRAZOLE] [Concomitant]
     Active Substance: PANTOPRAZOLE
     Dosage: 40 MG, CYCLIC (1-0-0-0)
  7. PREDNISOLON [PREDNISOLONE] [Concomitant]
     Active Substance: PREDNISOLONE
     Dosage: 20 MG, CYCLIC (1-0-0-0)
  8. MELPERON [Suspect]
     Active Substance: MELPERONE
     Dosage: 50 MG, CYCLIC (0-0-0-2)
  9. AMITRIPTYLIN [Suspect]
     Active Substance: AMITRIPTYLINE
     Dosage: 90 MG, CYCLIC (0-0-1-0)
  10. AMOXICILLIN CLAVULANIC ACID [Suspect]
     Active Substance: AMOXICILLIN\CLAVULANIC ACID
     Dosage: UNK UNK, 2X/DAY (875|125 MG)
     Dates: start: 20200210
  11. GABAPENTIN. [Suspect]
     Active Substance: GABAPENTIN
     Dosage: 300 MG, CYCLIC (0-0-1-0)
  12. COLECALCIFEROL [Concomitant]
     Active Substance: CHOLECALCIFEROL
     Dosage: 1000 IU, CYCLIC (1-0-0-0)
  13. TORASEMID [Concomitant]
     Active Substance: TORSEMIDE
     Dosage: 20 MG, CYCLIC (1-0-0-0)

REACTIONS (4)
  - Hypotension [Unknown]
  - Peripheral circulatory failure [Unknown]
  - Somnolence [Unknown]
  - Hypothermia [Unknown]
